FAERS Safety Report 20480901 (Version 2)
Quarter: 2024Q3

REPORT INFORMATION
  Report Type: Other
  Country: CA (occurrence: CA)
  Receive Date: 20220216
  Receipt Date: 20240828
  Transmission Date: 20241017
  Serious: Yes (Other)
  Sender: APOTEX
  Company Number: CA-APOTEX-2022AP003216

PATIENT
  Age: 50 Year
  Sex: Female

DRUGS (9)
  1. ACETAMINOPHEN [Suspect]
     Active Substance: ACETAMINOPHEN
     Indication: Product used for unknown indication
     Dosage: UNK
     Route: 065
  2. PANTOPRAZOLE [Suspect]
     Active Substance: PANTOPRAZOLE
     Indication: Product used for unknown indication
     Dosage: UNK
     Route: 065
  3. RANITIDINE [Suspect]
     Active Substance: RANITIDINE
     Indication: Product used for unknown indication
     Dosage: UNK
     Route: 065
  4. OMALIZUMAB [Suspect]
     Active Substance: OMALIZUMAB
     Indication: Chronic spontaneous urticaria
     Dosage: 300 MILLIGRAM
     Route: 058
  5. OMALIZUMAB [Suspect]
     Active Substance: OMALIZUMAB
     Dosage: 300 MILLIGRAM
     Route: 065
  6. OMALIZUMAB [Suspect]
     Active Substance: OMALIZUMAB
     Indication: Chronic spontaneous urticaria
     Dosage: 300 MILLIGRAM
     Route: 058
  7. MONTELUKAST [Concomitant]
     Active Substance: MONTELUKAST SODIUM
     Indication: Product used for unknown indication
     Dosage: 1 DOSAGE FORM, QD
     Route: 048
  8. RUPATADINE FUMARATE [Concomitant]
     Active Substance: RUPATADINE FUMARATE
     Indication: Product used for unknown indication
     Dosage: 4 DOSAGE FORM, QD
     Route: 048
  9. BUDESONIDE\FORMOTEROL FUMARATE [Concomitant]
     Active Substance: BUDESONIDE\FORMOTEROL FUMARATE
     Indication: Product used for unknown indication
     Dosage: 1 DOSAGE FORM, BID

REACTIONS (10)
  - Swelling face [Recovered/Resolved]
  - Hepatic steatosis [Recovered/Resolved]
  - Rheumatoid arthritis [Recovered/Resolved]
  - Asthma [Recovered/Resolved]
  - Blood pressure diastolic increased [Recovered/Resolved]
  - Blood pressure systolic increased [Recovered/Resolved]
  - Cough [Recovered/Resolved]
  - Drug hypersensitivity [Recovered/Resolved]
  - Urticaria [Recovered/Resolved]
  - Hepatitis C [Recovered/Resolved]
